FAERS Safety Report 15750452 (Version 1)
Quarter: 2018Q4

REPORT INFORMATION
  Report Type: Spontaneous
  Country: SI (occurrence: SI)
  Receive Date: 20181221
  Receipt Date: 20181221
  Transmission Date: 20190205
  Serious: Yes (Other)
  Sender: FDA-Public Use
  Company Number: SI-AMGEN-SVNSP2018180429

PATIENT
  Sex: Female

DRUGS (1)
  1. PROLIA [Suspect]
     Active Substance: DENOSUMAB
     Indication: OSTEOPOROSIS
     Dosage: UNK
     Route: 065

REACTIONS (7)
  - Fall [Unknown]
  - Abscess jaw [Unknown]
  - Osteonecrosis of jaw [Unknown]
  - Face injury [Unknown]
  - Osteomyelitis [Unknown]
  - Jaw fracture [Unknown]
  - Jaw fistula [Unknown]

NARRATIVE: CASE EVENT DATE: 201810
